FAERS Safety Report 12573797 (Version 1)
Quarter: 2016Q3

REPORT INFORMATION
  Report Type: Spontaneous
  Country: US (occurrence: None)
  Receive Date: 20160719
  Receipt Date: 20160719
  Transmission Date: 20161109
  Serious: Yes (Death)
  Sender: FDA-Public Use
  Company Number: None

PATIENT
  Age: 74 Year
  Sex: Male
  Weight: 85 kg

DRUGS (1)
  1. IMLYGIC [Suspect]
     Active Substance: TALIMOGENE LAHERPAREPVEC
     Dates: start: 20160105

REACTIONS (12)
  - Blood culture positive [None]
  - Renal tubular necrosis [None]
  - Liver function test increased [None]
  - Respiratory failure [None]
  - Gastric haemorrhage [None]
  - Gastrointestinal necrosis [None]
  - Haemodynamic instability [None]
  - Herpes simplex [None]
  - Pseudomonas test positive [None]
  - Metabolic acidosis [None]
  - Enterococcus test positive [None]
  - Staphylococcus test positive [None]

NARRATIVE: CASE EVENT DATE: 20160110
